FAERS Safety Report 10486912 (Version 1)
Quarter: 2014Q3

REPORT INFORMATION
  Report Type: Spontaneous
  Country: US (occurrence: None)
  Receive Date: 20140908
  Receipt Date: 20140908
  Transmission Date: 20150326
  Serious: Yes (Other)
  Sender: FDA-Public Use
  Company Number: 403355

PATIENT
  Age: 55 Year
  Sex: Male
  Weight: 140.6 kg

DRUGS (2)
  1. CALCIUM (CALCIUM) [Suspect]
     Active Substance: CALCIUM
     Indication: PRODUCT USED FOR UNKNOWN INDICATION
     Route: 048
  2. VICTOZA [Suspect]
     Active Substance: LIRAGLUTIDE
     Indication: TYPE 2 DIABETES MELLITUS
     Route: 058
     Dates: start: 20130702, end: 20140227

REACTIONS (3)
  - Pain [None]
  - Pancreatitis [None]
  - Sinus headache [None]

NARRATIVE: CASE EVENT DATE: 20140224
